FAERS Safety Report 6714268-X (Version None)
Quarter: 2010Q2

REPORT INFORMATION
  Report Type: 
  Country: None (occurrence: None)
  Receive Date: 20100506
  Receipt Date: 20090909
  Transmission Date: 20101027
  Serious: No
  Sender: FDA-Public Use
  Company Number: US-BAUSCH-2009BL004634

PATIENT
  Age: 80 Year
  Sex: Female

DRUGS (6)
  1. LOTEMAX [Suspect]
     Indication: BLEPHARITIS
     Route: 047
     Dates: start: 20090201, end: 20090201
  2. COUMADIN [Concomitant]
  3. TOPROL-XL [Concomitant]
  4. VITAMIN B COMPLEX TAB [Concomitant]
  5. VITAMIN D [Concomitant]
  6. COQ10 /USA/ [Concomitant]

REACTIONS (3)
  - BLOOD PRESSURE DECREASED [None]
  - DIZZINESS [None]
  - DRUG INEFFECTIVE [None]
